FAERS Safety Report 8908071 (Version 2)
Quarter: 2012Q4

REPORT INFORMATION
  Report Type: 
  Country: GB (occurrence: GB)
  Receive Date: 20121114
  Receipt Date: 20121126
  Transmission Date: 20130627
  Serious: Yes (Other)
  Sender: FDA-Public Use
  Company Number: PHFR2012GB005549

PATIENT
  Sex: Male

DRUGS (1)
  1. EVEROLIMUS [Suspect]
     Indication: INSULINOMA
     Dosage: 10 mg, QD

REACTIONS (3)
  - Squamous cell carcinoma of skin [Unknown]
  - Second primary malignancy [Unknown]
  - Skin lesion [Unknown]
